FAERS Safety Report 7893611-2 (Version None)
Quarter: 2011Q4

REPORT INFORMATION
  Report Type: 
  Country: None (occurrence: None)
  Receive Date: 20111104
  Receipt Date: 20111028
  Transmission Date: 20120403
  Serious: Yes (Hospitalization)
  Sender: FDA-Public Use
  Company Number: US-GLAXOSMITHKLINE-A0951243A

PATIENT
  Age: 89 Year
  Sex: Male

DRUGS (3)
  1. DYAZIDE [Suspect]
     Indication: HYPERTENSION
     Route: 048
  2. UNKNOWN [Concomitant]
     Indication: BLOOD IRON INCREASED
  3. PLAVIX [Concomitant]
     Indication: PRODUCT USED FOR UNKNOWN INDICATION

REACTIONS (1)
  - MYELODYSPLASTIC SYNDROME [None]
